FAERS Safety Report 25258121 (Version 1)
Quarter: 2025Q2

REPORT INFORMATION
  Report Type: Report from Study
  Country: GB (occurrence: GB)
  Receive Date: 20250501
  Receipt Date: 20250501
  Transmission Date: 20250716
  Serious: Yes (Hospitalization, Other)
  Sender: NOVARTIS
  Company Number: GB-002147023-NVSC2024GB074620

PATIENT
  Sex: Female

DRUGS (1)
  1. COSENTYX [Suspect]
     Active Substance: SECUKINUMAB
     Indication: Psoriatic arthropathy
     Dosage: 300 MG, (1 PRE-FILLED DISPOSABLE INJECTION) QMO
     Route: 058

REACTIONS (8)
  - Osteomyelitis [Unknown]
  - Ear infection [Not Recovered/Not Resolved]
  - Breast cancer recurrent [Unknown]
  - Brain abscess [Unknown]
  - Infection [Unknown]
  - Malaise [Unknown]
  - Headache [Unknown]
  - Skin infection [Unknown]

NARRATIVE: CASE EVENT DATE: 20240801
